FAERS Safety Report 8089573-8 (Version None)
Quarter: 2012Q1

REPORT INFORMATION
  Report Type: 
  Country: None (occurrence: None)
  Receive Date: 20120128
  Receipt Date: 20110708
  Transmission Date: 20120608
  Serious: No
  Sender: FDA-Public Use
  Company Number: US-ABBOTT-11P-163-0837737-00

PATIENT
  Age: 18 Year
  Sex: Female

DRUGS (13)
  1. RYBIX [Concomitant]
     Indication: PAIN
     Dosage: 50 MG - AS NEEDED
  2. LIBRAX [Concomitant]
     Indication: IRRITABLE BOWEL SYNDROME
     Dosage: 2.5/5
  3. WELLBUTRIN XL [Concomitant]
     Indication: ATTENTION DEFICIT/HYPERACTIVITY DISORDER
     Dosage: 150 MG - DAILY
  4. MONONESSA [Concomitant]
     Indication: ORAL CONTRACEPTION
  5. ADVAIR DISKUS 100/50 [Concomitant]
     Indication: BRONCHIAL HYPERREACTIVITY
     Dosage: 2 PUFFS - BID
     Route: 055
  6. METHOTREXATE [Concomitant]
     Indication: RHEUMATOID ARTHRITIS
     Dosage: 0.7CC - WEEKLY
  7. CELEBREX [Concomitant]
     Indication: RHEUMATOID ARTHRITIS
     Dosage: 200 MG - AS NEEDED
  8. VYVANSE [Concomitant]
     Indication: ATTENTION DEFICIT/HYPERACTIVITY DISORDER
     Dosage: 20 MG - DAILY
  9. FOLIC ACID [Concomitant]
     Indication: VITAMIN SUPPLEMENTATION
     Dosage: 4 MG - WEEKLY
  10. MIDRIN [Concomitant]
     Indication: MIGRAINE
  11. ACIPHEX [Concomitant]
     Indication: GASTROOESOPHAGEAL REFLUX DISEASE
     Dosage: 20 MG - DAILY
  12. ONDANSETRON HCL [Concomitant]
     Indication: NAUSEA
  13. HUMIRA [Suspect]
     Indication: RHEUMATOID ARTHRITIS
     Dates: start: 20110701

REACTIONS (3)
  - INJECTION SITE PAIN [None]
  - ARTHRALGIA [None]
  - OEDEMA PERIPHERAL [None]
